FAERS Safety Report 7318376-4 (Version None)
Quarter: 2011Q1

REPORT INFORMATION
  Report Type: 
  Country: None (occurrence: None)
  Receive Date: 20110218
  Receipt Date: 20110218
  Transmission Date: 20110831
  Serious: Yes (Hospitalization)
  Sender: FDA-Public Use
  Company Number: None

PATIENT
  Sex: Male
  Weight: 81.6 kg

DRUGS (5)
  1. LOVENOX [Concomitant]
  2. LEVAQUIN [Concomitant]
  3. BACTRIM DS [Concomitant]
  4. PEG-L ASPARAGINASE (K-H) [Suspect]
     Dosage: 10550 IU
  5. FLUCONAZOLE [Concomitant]

REACTIONS (5)
  - DEVICE MALFUNCTION [None]
  - SYNCOPE [None]
  - ASTHENIA [None]
  - CONFUSIONAL STATE [None]
  - PANCREATITIS [None]
